FAERS Safety Report 4632365-X (Version None)
Quarter: 2005Q2

REPORT INFORMATION
  Report Type: 
  Country: None (occurrence: None)
  Receive Date: 20050411
  Receipt Date: 20050331
  Transmission Date: 20051028
  Serious: Yes (Other)
  Sender: FDA-Public Use
  Company Number: US-GLAXOSMITHKLINE-A0552123A

PATIENT
  Sex: Female

DRUGS (2)
  1. PAXIL CR [Suspect]
     Indication: DEPRESSION
     Dosage: 25MG PER DAY
     Route: 048
     Dates: start: 20050101, end: 20050331
  2. ABILIFY [Concomitant]

REACTIONS (4)
  - DIZZINESS [None]
  - HALLUCINATION, VISUAL [None]
  - NAUSEA [None]
  - PANIC ATTACK [None]
